FAERS Safety Report 6289579-5 (Version None)
Quarter: 2009Q3

REPORT INFORMATION
  Report Type: 
  Country: None (occurrence: None)
  Receive Date: 20090728
  Receipt Date: 20090728
  Transmission Date: 20100115
  Serious: Yes (Disabling, Other)
  Sender: FDA-Public Use
  Company Number: None

PATIENT
  Sex: Female
  Weight: 47.6277 kg

DRUGS (1)
  1. RECLAST [Suspect]
     Indication: OSTEOPOROSIS
     Dosage: ONE TIME IV
     Route: 042
     Dates: start: 20081010, end: 20081010

REACTIONS (6)
  - EATING DISORDER [None]
  - FEAR [None]
  - HEADACHE [None]
  - ORAL PAIN [None]
  - OSTEONECROSIS [None]
  - WEIGHT DECREASED [None]
